FAERS Safety Report 5594203-0 (Version None)
Quarter: 2008Q1

REPORT INFORMATION
  Report Type: 
  Country: None (occurrence: None)
  Receive Date: 20080115
  Receipt Date: 20080109
  Transmission Date: 20080703
  Serious: Yes (Other)
  Sender: FDA-Public Use
  Company Number: 028-20785-04070692

PATIENT
  Age: 37 Year
  Sex: Female

DRUGS (6)
  1. THALOMID [Suspect]
     Indication: MULTIPLE MYELOMA
     Dosage: 200 MG, 4 IN 1 D, ORAL
     Route: 048
     Dates: start: 20051001
  2. THALOMID [Suspect]
     Dosage: 100 MG, QHS, ORAL
     Route: 048
     Dates: end: 20051001
  3. THALOMID [Suspect]
  4. THALOMID [Suspect]
  5. CYCLOPHOSPHAMIDE [Concomitant]
  6. PREDNISONE TAB [Concomitant]

REACTIONS (3)
  - BLOOD HUMAN CHORIONIC GONADOTROPIN ABNORMAL [None]
  - ILL-DEFINED DISORDER [None]
  - LABORATORY TEST INTERFERENCE [None]
